FAERS Safety Report 9080394 (Version 1)
Quarter: 2013Q1

REPORT INFORMATION
  Report Type: Spontaneous
  Country: ES (occurrence: ES)
  Receive Date: 20130218
  Receipt Date: 20130218
  Transmission Date: 20140127
  Serious: Yes (Hospitalization, Other)
  Sender: FDA-Public Use
  Company Number: PHHY2013ES014707

PATIENT
  Age: 86 Year
  Sex: Female

DRUGS (5)
  1. TRILEPTAL [Suspect]
     Indication: CONVULSION
     Dosage: 1 DF, UNK
     Route: 048
     Dates: start: 2008, end: 20120710
  2. ATACAND PLUS [Interacting]
     Indication: HYPERTENSION
     Dosage: 1 DF, UNK
     Route: 048
  3. ACID ACETYLSALICYLIC [Concomitant]
     Dosage: 100 MG, QD
     Route: 048
  4. OMEPRAZOL [Concomitant]
     Indication: PROPHYLAXIS
     Dosage: 29 MG, UNK
     Route: 048
     Dates: start: 2007
  5. LORMETAZEPAM [Concomitant]
     Dosage: 1 MG, QD
     Route: 048
     Dates: start: 201201, end: 20120710

REACTIONS (4)
  - Blood antidiuretic hormone decreased [Recovered/Resolved]
  - Gait disturbance [Unknown]
  - Drug interaction [Unknown]
  - Hyponatraemia [Unknown]
